FAERS Safety Report 8915219 (Version 1)
Quarter: 2012Q4

REPORT INFORMATION
  Report Type: 
  Country: DE (occurrence: DE)
  Receive Date: 20121119
  Receipt Date: 20121119
  Transmission Date: 20130627
  Serious: Yes (Hospitalization)
  Sender: FDA-Public Use
  Company Number: DE-ELI_LILLY_AND_COMPANY-DE201211002657

PATIENT
  Age: 76 Year
  Sex: Female

DRUGS (7)
  1. FORSTEO [Suspect]
     Indication: OSTEOPOROSIS
     Dosage: UNK, qd
     Route: 058
     Dates: start: 20120808
  2. INSULIN [Concomitant]
     Dosage: UNK
     Dates: start: 1992
  3. CO DIOVAN [Concomitant]
  4. FUROSEMIDE [Concomitant]
     Dosage: 20 DF, qd
  5. METOPROLOL [Concomitant]
  6. L-THYROX [Concomitant]
     Dosage: UNK, qd
  7. ALLOBETA [Concomitant]
     Dosage: UNK, qd

REACTIONS (1)
  - Upper limb fracture [Not Recovered/Not Resolved]
